FAERS Safety Report 10230224 (Version 2)
Quarter: 2014Q2

REPORT INFORMATION
  Report Type: Spontaneous
  Country: GR (occurrence: GR)
  Receive Date: 20140611
  Receipt Date: 20140616
  Transmission Date: 20141212
  Serious: Yes (Hospitalization, Other)
  Sender: FDA-Public Use
  Company Number: GR-PFIZER INC-2014156954

PATIENT
  Sex: Female

DRUGS (3)
  1. METHOTREXATE SODIUM [Suspect]
     Dosage: 10 MG, WEEKLY
  2. METHYLPREDNISOLONE [Suspect]
     Dosage: 2 MG, DAILY
  3. HYDROXYCHLOROQUINE [Suspect]
     Dosage: UNK

REACTIONS (1)
  - Lupus nephritis [Unknown]
